FAERS Safety Report 7345767-8 (Version None)
Quarter: 2011Q1

REPORT INFORMATION
  Report Type: 
  Country: None (occurrence: None)
  Receive Date: 20110311
  Receipt Date: 20110304
  Transmission Date: 20110831
  Serious: Yes (Hospitalization)
  Sender: FDA-Public Use
  Company Number: US-BIOGENIDEC-2011BI001963

PATIENT
  Age: 52 Year
  Sex: Female
  Weight: 85 kg

DRUGS (2)
  1. TYSABRI [Suspect]
     Indication: MULTIPLE SCLEROSIS
     Route: 042
     Dates: start: 20090501
  2. DELATIN (NOS PAINKILLER) [Concomitant]

REACTIONS (12)
  - SUICIDE ATTEMPT [None]
  - VERTIGO [None]
  - RHINORRHOEA [None]
  - DIARRHOEA [None]
  - SNEEZING [None]
  - OROPHARYNGEAL PAIN [None]
  - HEADACHE [None]
  - VIBRATORY SENSE INCREASED [None]
  - NAUSEA [None]
  - GRAND MAL CONVULSION [None]
  - BLEPHAROSPASM [None]
  - COUGH [None]
